FAERS Safety Report 8301649-6 (Version None)
Quarter: 2012Q2

REPORT INFORMATION
  Report Type: 
  Country: None (occurrence: None)
  Receive Date: 20120420
  Receipt Date: 20120410
  Transmission Date: 20120825
  Serious: Yes (Hospitalization)
  Sender: FDA-Public Use
  Company Number: FR-ROCHE-1058716

PATIENT
  Sex: Female
  Weight: 35 kg

DRUGS (9)
  1. MABTHERA [Suspect]
     Indication: LYMPHOMA
     Route: 042
     Dates: start: 20120309
  2. MABTHERA [Suspect]
     Route: 042
     Dates: start: 20120326
  3. ONCOVIN [Suspect]
     Route: 042
     Dates: start: 20120326
  4. DOXORUBICIN HCL [Suspect]
     Indication: LYMPHOMA
     Route: 042
     Dates: start: 20120312
  5. DOXORUBICIN HCL [Suspect]
     Route: 042
     Dates: start: 20120326
  6. CYCLOPHOSPHAMIDE [Suspect]
     Route: 042
     Dates: start: 20120326
  7. ONCOVIN [Suspect]
     Indication: LYMPHOMA
     Route: 042
     Dates: start: 20120312
  8. MABTHERA [Suspect]
     Route: 042
     Dates: start: 20120319
  9. CYCLOPHOSPHAMIDE [Suspect]
     Indication: LYMPHOMA
     Route: 042
     Dates: start: 20120312

REACTIONS (2)
  - CHOLESTASIS [None]
  - CYTOLYTIC HEPATITIS [None]
